FAERS Safety Report 8482771-0 (Version None)
Quarter: 2012Q3

REPORT INFORMATION
  Report Type: 
  Country: None (occurrence: None)
  Receive Date: 20120702
  Receipt Date: 20120619
  Transmission Date: 20120928
  Serious: Yes (Death, Other)
  Sender: FDA-Public Use
  Company Number: IT-CELGENEUS-083-21880-12012474

PATIENT

DRUGS (9)
  1. STEROIDS [Concomitant]
     Route: 065
  2. DEXAMETHASONE [Concomitant]
     Indication: MULTIPLE MYELOMA
     Route: 065
  3. DEXAMETHASONE [Concomitant]
     Route: 065
  4. BACTRIM [Concomitant]
     Route: 065
  5. NEUPOGEN [Concomitant]
     Route: 065
  6. STEROIDS [Concomitant]
     Indication: MULTIPLE MYELOMA
     Route: 065
  7. NEUPOGEN [Concomitant]
     Route: 065
  8. REVLIMID [Suspect]
     Indication: MULTIPLE MYELOMA
     Route: 048
  9. BACTRIM [Concomitant]
     Indication: INFECTION PROPHYLAXIS
     Route: 065

REACTIONS (8)
  - SEPTIC SHOCK [None]
  - PNEUMONIA [None]
  - PYREXIA [None]
  - HERPES ZOSTER [None]
  - UPPER RESPIRATORY TRACT INFECTION [None]
  - INFECTION [None]
  - CHOLECYSTITIS [None]
  - NEUTROPENIA [None]
